FAERS Safety Report 22104125 (Version 1)
Quarter: 2023Q1

REPORT INFORMATION
  Report Type: Spontaneous
  Country: CN (occurrence: CN)
  Receive Date: 20230316
  Receipt Date: 20230316
  Transmission Date: 20230418
  Serious: Yes (Other)
  Sender: FDA-Public Use
  Company Number: CN-FreseniusKabi-FK202303164

PATIENT
  Age: 55 Year
  Sex: Male
  Weight: 82 kg

DRUGS (11)
  1. OMEGAVEN [Suspect]
     Active Substance: FISH OIL
     Indication: Nutritional supplementation
     Route: 041
     Dates: start: 20220817, end: 20220817
  2. ALANYL GLUTAMINE [Suspect]
     Active Substance: ALANYL GLUTAMINE
     Indication: Nutritional supplementation
     Route: 041
     Dates: start: 20220817, end: 20220817
  3. GLYCERIN\MEDIUM-CHAIN TRIGLYCERIDES\PHOSPHOLIPID\SOYBEAN OIL [Suspect]
     Active Substance: GLYCERIN\MEDIUM-CHAIN TRIGLYCERIDES\PHOSPHOLIPID\SOYBEAN OIL
     Indication: Nutritional supplementation
     Route: 041
     Dates: start: 20220817, end: 20220817
  4. AMINO ACIDS, SOURCE UNSPECIFIED [Suspect]
     Active Substance: AMINO ACIDS, SOURCE UNSPECIFIED
     Indication: Nutritional supplementation
     Route: 041
     Dates: start: 20220817, end: 20220817
  5. VITAMINS [Suspect]
     Active Substance: VITAMINS
     Indication: Nutritional supplementation
     Route: 041
     Dates: start: 20220817, end: 20220817
  6. INSULIN NOS [Suspect]
     Active Substance: INSULIN NOS
     Indication: Nutritional supplementation
     Route: 041
     Dates: start: 20220817, end: 20220817
  7. POTASSIUM CHLORIDE [Concomitant]
     Active Substance: POTASSIUM CHLORIDE
     Indication: Nutritional supplementation
     Route: 041
     Dates: start: 20220817, end: 20220817
  8. DEXTROSE [Concomitant]
     Active Substance: DEXTROSE
     Indication: Nutritional supplementation
     Route: 041
     Dates: start: 20220817, end: 20220817
  9. Concentrated Sodium Chloride Injection [Concomitant]
     Indication: Nutritional supplementation
     Route: 041
     Dates: start: 20220817, end: 20220817
  10. Potassium Aspartate Injection [Concomitant]
     Indication: Nutritional supplementation
     Route: 041
     Dates: start: 20220817, end: 20220817
  11. DEXTROSE [Concomitant]
     Active Substance: DEXTROSE
     Indication: Nutritional supplementation
     Route: 041
     Dates: start: 20220817, end: 20220817

REACTIONS (2)
  - Feeling cold [Recovering/Resolving]
  - Pyrexia [Recovering/Resolving]

NARRATIVE: CASE EVENT DATE: 20220817
